FAERS Safety Report 10481514 (Version 1)
Quarter: 2014Q3

REPORT INFORMATION
  Report Type: Spontaneous
  Country: US (occurrence: None)
  Receive Date: 20140908
  Receipt Date: 20140908
  Transmission Date: 20150326
  Serious: Yes (Other)
  Sender: FDA-Public Use
  Company Number: 392508

PATIENT
  Age: 53 Year
  Sex: Female
  Weight: 133.5 kg

DRUGS (13)
  1. CLONIDINE. [Concomitant]
     Active Substance: CLONIDINE
  2. ZAROXOLYN (METOLAZONE) [Concomitant]
  3. NIASPAN (NICOTINIC ACID) [Concomitant]
  4. AMLODIPINE BESILATE [Concomitant]
     Active Substance: AMLODIPINE BESYLATE
  5. HYDRALAZINE [Concomitant]
     Active Substance: HYDRALAZINE HYDROCHLORIDE
  6. LEVEMIR FLEXPEN (INSULIN DETEMIR) [Concomitant]
  7. VICTOZA [Suspect]
     Active Substance: LIRAGLUTIDE
     Indication: TYPE 2 DIABETES MELLITUS
     Route: 058
     Dates: start: 20130521, end: 20131026
  8. DIOVAN [Concomitant]
     Active Substance: VALSARTAN
  9. PLAVIX [Concomitant]
     Active Substance: CLOPIDOGREL BISULFATE
  10. LIPITOR [Concomitant]
     Active Substance: ATORVASTATIN CALCIUM
  11. NOVOLOG FLEXPEN (INSULIN ASPART) [Concomitant]
  12. ASPIRIN (ACETYLSALICYLIC ACID) [Concomitant]
     Active Substance: ASPIRIN
  13. FUROSEMIDE. [Concomitant]
     Active Substance: FUROSEMIDE

REACTIONS (1)
  - Pancreatitis [None]

NARRATIVE: CASE EVENT DATE: 20131026
